FAERS Safety Report 10460243 (Version 1)
Quarter: 2014Q3

REPORT INFORMATION
  Report Type: Report from Study
  Country: VE (occurrence: VE)
  Receive Date: 20140917
  Receipt Date: 20140917
  Transmission Date: 20150326
  Serious: Yes (Hospitalization, Other)
  Sender: FDA-Public Use
  Company Number: PHHY2014VE120519

PATIENT
  Age: 82 Year
  Sex: Male

DRUGS (6)
  1. FORADIL [Suspect]
     Active Substance: FORMOTEROL FUMARATE
     Indication: ASTHMA
     Dosage: 12 UG, DAILY
     Route: 055
     Dates: start: 2002, end: 20140906
  2. LISIFORT [Concomitant]
     Indication: IMMUNE SYSTEM DISORDER
  3. MIFLONIDE [Suspect]
     Active Substance: BUDESONIDE
     Indication: ASTHMA
     Dosage: 400 UG, DAILY
     Route: 055
     Dates: start: 2002, end: 20140906
  4. GLAFORNIL [Concomitant]
     Indication: BLOOD GLUCOSE ABNORMAL
  5. XOLAIR [Suspect]
     Active Substance: OMALIZUMAB
     Dosage: 150 MG, QMO
     Route: 058
     Dates: start: 20140821
  6. XOLAIR [Suspect]
     Active Substance: OMALIZUMAB
     Indication: ASTHMA
     Dosage: 150 MG, QMO
     Route: 058

REACTIONS (12)
  - Dengue fever [Recovering/Resolving]
  - Platelet count decreased [Unknown]
  - Malaise [Recovering/Resolving]
  - Choking [Recovering/Resolving]
  - Cough [Recovering/Resolving]
  - Productive cough [Recovering/Resolving]
  - Pneumonia [Recovering/Resolving]
  - Cardiac disorder [Recovering/Resolving]
  - Asthmatic crisis [Recovering/Resolving]
  - Fluid retention [Recovering/Resolving]
  - Dehydration [Recovering/Resolving]
  - Insomnia [Recovering/Resolving]

NARRATIVE: CASE EVENT DATE: 20140904
